FAERS Safety Report 4514308-2 (Version None)
Quarter: 2004Q4

REPORT INFORMATION
  Report Type: 
  Country: None (occurrence: None)
  Receive Date: 20041126
  Receipt Date: 20041118
  Transmission Date: 20050328
  Serious: Yes (Hospitalization)
  Sender: FDA-Public Use
  Company Number: 210476

PATIENT
  Age: 52 Year
  Sex: Female

DRUGS (6)
  1. AVASTIN [Suspect]
     Indication: COLORECTAL CANCER METASTATIC
     Dosage: 250 MG, , Q2W, INTRAVENOUS
     Route: 042
     Dates: start: 20040623
  2. OXALIPLATIN [Concomitant]
  3. LEUCOVORIN CALCIUM [Concomitant]
  4. FLUOROURACIL [Concomitant]
  5. LOMOTIL [Concomitant]
  6. ZOFRAN [Concomitant]

REACTIONS (6)
  - BLOOD POTASSIUM DECREASED [None]
  - FATIGUE [None]
  - FEELING ABNORMAL [None]
  - HAEMOGLOBIN DECREASED [None]
  - PLATELET COUNT DECREASED [None]
  - PYREXIA [None]
